FAERS Safety Report 5023532-4 (Version None)
Quarter: 2006Q2

REPORT INFORMATION
  Report Type: 
  Country: None (occurrence: None)
  Receive Date: 20060612
  Receipt Date: 20060605
  Transmission Date: 20061013
  Serious: Yes (Other)
  Sender: FDA-Public Use
  Company Number: ZA-GLAXOSMITHKLINE-B0426941A

PATIENT
  Age: 32 Year
  Sex: Male

DRUGS (1)
  1. ZYBAN [Suspect]
     Dosage: 150MG PER DAY
     Dates: start: 20060101, end: 20060101

REACTIONS (2)
  - AGGRESSION [None]
  - PHYSICAL ASSAULT [None]
